FAERS Safety Report 21001569 (Version 1)
Quarter: 2022Q2

REPORT INFORMATION
  Report Type: Spontaneous
  Country: US (occurrence: US)
  Receive Date: 20220624
  Receipt Date: 20220624
  Transmission Date: 20220721
  Serious: No
  Sender: FDA-Public Use
  Company Number: US-BioHaven Pharmaceuticals-2022BHV000929

PATIENT

DRUGS (1)
  1. NURTEC ODT [Suspect]
     Active Substance: RIMEGEPANT SULFATE
     Indication: Product used for unknown indication
     Dosage: WHEN MY NECK ACHES ITS A DIFFERENT TYPE OF PAIN. I KNOW WHEN ITS COMING AND I USUAL TAKE A NURTEC BE
     Route: 065

REACTIONS (1)
  - Therapeutic product effect variable [Unknown]
